FAERS Safety Report 24977256 (Version 1)
Quarter: 2025Q1

REPORT INFORMATION
  Report Type: Spontaneous
  Country: US (occurrence: US)
  Receive Date: 20250217
  Receipt Date: 20250217
  Transmission Date: 20250409
  Serious: No
  Sender: DR REDDYS
  Company Number: US-DRL-USA-USA/2025/02/002050

PATIENT
  Age: 32 Year
  Sex: Female
  Weight: 82.92 kg

DRUGS (4)
  1. JAVYGTOR [Suspect]
     Active Substance: SAPROPTERIN DIHYDROCHLORIDE
     Indication: Phenylketonuria
     Dosage: DISSOLVE THREE 500 MG POWDER PACKETS AND TWO 100 MG POWDER PACKETS IN 4 TO 8 OUNCES OF WATER OR APPL
     Route: 048
  2. JAVYGTOR [Suspect]
     Active Substance: SAPROPTERIN DIHYDROCHLORIDE
     Indication: Hyperphenylalaninaemia
  3. JAVYGTOR [Suspect]
     Active Substance: SAPROPTERIN DIHYDROCHLORIDE
     Indication: Hyperphenylalaninaemia
     Dosage: DISSOLVE THREE 500 MG POWDER PACKETS AND TWO 100 MG POWDER PACKETS IN 4 TO 8 OUNCES OF WATER OR APPL
     Route: 048
  4. JAVYGTOR [Suspect]
     Active Substance: SAPROPTERIN DIHYDROCHLORIDE
     Indication: Phenylketonuria

REACTIONS (2)
  - Decreased appetite [Unknown]
  - Exposure during pregnancy [Unknown]
